FAERS Safety Report 8485538-2 (Version None)
Quarter: 2012Q2

REPORT INFORMATION
  Report Type: 
  Country: None (occurrence: None)
  Receive Date: 20120627
  Receipt Date: 20120627
  Transmission Date: 20120825
  Serious: No
  Sender: FDA-Public Use
  Company Number: None

PATIENT
  Sex: Male

DRUGS (1)
  1. TEMAZEPAM [Suspect]
     Indication: INSOMNIA
     Dosage: 30 MG ONCE A DAY PO
     Route: 048
     Dates: start: 20120616, end: 20120622

REACTIONS (4)
  - URGE INCONTINENCE [None]
  - PAIN [None]
  - MICTURITION URGENCY [None]
  - URINARY TRACT DISORDER [None]
